FAERS Safety Report 6603553-8 (Version None)
Quarter: 2010Q1

REPORT INFORMATION
  Report Type: 
  Country: None (occurrence: None)
  Receive Date: 20100226
  Receipt Date: 20090929
  Transmission Date: 20100710
  Serious: No
  Sender: FDA-Public Use
  Company Number: A0809748A

PATIENT
  Sex: Male

DRUGS (2)
  1. VALTREX [Suspect]
     Route: 048
     Dates: start: 20090901, end: 20090901
  2. UNKNOWN MEDICATION [Concomitant]

REACTIONS (2)
  - SKIN LESION [None]
  - SWELLING [None]
